FAERS Safety Report 7198750-X (Version None)
Quarter: 2010Q4

REPORT INFORMATION
  Report Type: 
  Country: None (occurrence: None)
  Receive Date: 20101227
  Receipt Date: 20100922
  Transmission Date: 20110411
  Serious: No
  Sender: FDA-Public Use
  Company Number: US-ABBOTT-10P-163-0673327-00

PATIENT
  Sex: Male
  Weight: 87.168 kg

DRUGS (3)
  1. LUPRON DEPOT [Suspect]
     Indication: PROSTATE CANCER
     Route: 050
     Dates: start: 20100401, end: 20100701
  2. LUPRON DEPOT [Suspect]
     Indication: PROSTATE CANCER
     Route: 050
     Dates: start: 20100801
  3. UNKNOWN CALCIUM CHANNEL BLOCKER [Concomitant]
     Indication: HYPERTENSION

REACTIONS (1)
  - HOT FLUSH [None]
